FAERS Safety Report 20080685 (Version 2)
Quarter: 2022Q1

REPORT INFORMATION
  Report Type: Report from Study
  Country: AR (occurrence: AR)
  Receive Date: 20211117
  Receipt Date: 20220218
  Transmission Date: 20220423
  Serious: Yes (Hospitalization)
  Sender: FDA-Public Use
  Company Number: AR-SA-SAC20211116001306

PATIENT
  Age: 15 Year
  Sex: Male

DRUGS (2)
  1. DUPILUMAB [Suspect]
     Active Substance: DUPILUMAB
     Indication: Dermatitis atopic
     Dosage: UNK, QOW
     Route: 058
     Dates: start: 20211021
  2. TOZINAMERAN [Suspect]
     Active Substance: TOZINAMERAN
     Indication: Immunisation
     Dosage: UNK
     Route: 065

REACTIONS (7)
  - Pyrexia [Unknown]
  - Lymphadenopathy [Unknown]
  - Erythema [Unknown]
  - Swelling [Unknown]
  - Miliaria [Unknown]
  - Arthralgia [Unknown]
  - Rash [Recovering/Resolving]

NARRATIVE: CASE EVENT DATE: 20211110
